FAERS Safety Report 9270442 (Version 1)
Quarter: 2013Q2

REPORT INFORMATION
  Report Type: Spontaneous
  Country: US (occurrence: US)
  Receive Date: 20130503
  Receipt Date: 20130503
  Transmission Date: 20140414
  Serious: No
  Sender: FDA-Public Use
  Company Number: US-MUTUAL PHARMACEUTICAL COMPANY, INC.-BCTM20130041

PATIENT
  Sex: Male

DRUGS (4)
  1. BACTRIM TABLETS [Suspect]
     Route: 065
     Dates: start: 20100806, end: 2010
  2. BACTRIM TABLETS [Suspect]
     Route: 065
     Dates: start: 201108
  3. SULFAMETHOXAZOLE AND TRIMETHOPRIM [Suspect]
     Route: 065
     Dates: start: 20100803, end: 20100806
  4. SULFAMETHOXAZOLE AND TRIMETHOPRIM [Suspect]
     Dates: start: 201008, end: 20100815

REACTIONS (6)
  - Death [None]
  - Hypersensitivity [None]
  - Stevens-Johnson syndrome [None]
  - Toxic epidermal necrolysis [None]
  - Unevaluable event [None]
  - Weight decreased [None]
